FAERS Safety Report 5372072-1 (Version None)
Quarter: 2007Q2

REPORT INFORMATION
  Report Type: 
  Country: None (occurrence: None)
  Receive Date: 20070627
  Receipt Date: 20070615
  Transmission Date: 20071010
  Serious: Yes (Other)
  Sender: FDA-Public Use
  Company Number: JP-ROCHE-457613

PATIENT
  Age: 34 Year
  Sex: Male
  Weight: 58 kg

DRUGS (3)
  1. ROCEPHIN [Suspect]
     Indication: TONSILLITIS
     Dosage: TRADE NAME: ROCEPHIN 1G BAG.
     Route: 041
     Dates: start: 20060713, end: 20060713
  2. ROCEPHIN [Suspect]
     Dosage: THE PATIENT RECEIVED CEFTRIAXONE ONCE IN SEPTEMBER 2006.
     Route: 041
     Dates: start: 20060901, end: 20060901
  3. FLOMOX [Concomitant]
     Route: 048

REACTIONS (1)
  - ANAPHYLACTOID REACTION [None]
